FAERS Safety Report 8788677 (Version 6)
Quarter: 2014Q2

REPORT INFORMATION
  Report Type: Report from Study
  Country: JP (occurrence: JP)
  Receive Date: 20120916
  Receipt Date: 20140604
  Transmission Date: 20141212
  Serious: Yes (Hospitalization, Other)
  Sender: FDA-Public Use
  Company Number: PHHY2012JP079893

PATIENT
  Age: 75 Year
  Sex: Female
  Weight: 43 kg

DRUGS (9)
  1. AMN107 [Suspect]
     Indication: CHRONIC MYELOID LEUKAEMIA
     Dosage: 800 MG, DAILY
     Route: 048
     Dates: start: 20111209, end: 20120105
  2. AMN107 [Suspect]
     Dosage: 800 MG, DAILY
     Route: 048
     Dates: start: 20120119, end: 20120606
  3. AMN107 [Suspect]
     Dosage: 400 MG, DAILY
     Route: 048
     Dates: start: 20120607
  4. AMN107 [Suspect]
     Dosage: 400 MG, DAILY
     Route: 048
     Dates: end: 20130517
  5. FOIPAN [Concomitant]
     Indication: CHRONIC MYELOID LEUKAEMIA
     Dosage: 600 MG
     Route: 048
     Dates: start: 20111209
  6. GASMOTIN [Concomitant]
     Indication: CHRONIC MYELOID LEUKAEMIA
     Dosage: 15 MG
     Route: 048
     Dates: start: 20111209, end: 20120315
  7. ALFAROL [Concomitant]
     Indication: HYPOMAGNESAEMIA
     Dosage: 0.5 UG
     Route: 048
     Dates: start: 20111209
  8. NAUZELIN [Concomitant]
     Indication: CHRONIC MYELOID LEUKAEMIA
     Dosage: 20 MG
     Route: 048
     Dates: start: 20120316
  9. GASTER D [Concomitant]
     Indication: CHRONIC MYELOID LEUKAEMIA
     Dosage: 20 MG
     Route: 048
     Dates: start: 20120607

REACTIONS (5)
  - Cerebral infarction [Recovering/Resolving]
  - Hemiplegia [Recovering/Resolving]
  - Blood bilirubin increased [Not Recovered/Not Resolved]
  - Anaemia [Unknown]
  - Electrocardiogram QT prolonged [Unknown]
